FAERS Safety Report 5718944-7 (Version None)
Quarter: 2008Q2

REPORT INFORMATION
  Report Type: 
  Country: None (occurrence: None)
  Receive Date: 20080425
  Receipt Date: 20080417
  Transmission Date: 20081010
  Serious: Yes (Hospitalization)
  Sender: FDA-Public Use
  Company Number: BR-PFIZER INC-2008035212

PATIENT
  Sex: Male

DRUGS (4)
  1. VIAGRA [Suspect]
     Indication: ERECTILE DYSFUNCTION
     Route: 048
  2. PANTOPRAZOLE SODIUM [Concomitant]
  3. ROCEPHIN [Concomitant]
  4. POLYETHYLENE GLYCOL [Concomitant]

REACTIONS (2)
  - PROSTATECTOMY [None]
  - SEMINAL VESICLE OPERATION [None]
